FAERS Safety Report 19873002 (Version 1)
Quarter: 2021Q3

REPORT INFORMATION
  Report Type: Spontaneous
  Country: FI (occurrence: FI)
  Receive Date: 20210922
  Receipt Date: 20210922
  Transmission Date: 20211014
  Serious: Yes (Other)
  Sender: FDA-Public Use
  Company Number: FI-MYLANLABS-2021M1064202

PATIENT
  Sex: Male

DRUGS (1)
  1. FLUVASTATIN [Suspect]
     Active Substance: FLUVASTATIN SODIUM
     Indication: TYPE IIA HYPERLIPIDAEMIA
     Dosage: UNK
     Dates: end: 202109

REACTIONS (4)
  - Tinnitus [Unknown]
  - Deafness unilateral [Unknown]
  - Pruritus [Recovered/Resolved]
  - Ear congestion [Unknown]
